FAERS Safety Report 12790527 (Version 1)
Quarter: 2016Q3

REPORT INFORMATION
  Report Type: Report from Study
  Country: US (occurrence: US)
  Receive Date: 20160929
  Receipt Date: 20160929
  Transmission Date: 20161109
  Serious: Yes (Other)
  Sender: FDA-Public Use
  Company Number: US-BRISTOL-MYERS SQUIBB COMPANY-BMS-2016-078149

PATIENT
  Sex: Male

DRUGS (1)
  1. ABATACEPT [Suspect]
     Active Substance: ABATACEPT
     Indication: PRODUCT USED FOR UNKNOWN INDICATION
     Route: 058

REACTIONS (7)
  - Renal disorder [Unknown]
  - Blood pressure decreased [Unknown]
  - Systemic lupus erythematosus [Unknown]
  - Dehydration [Unknown]
  - Asthenia [Unknown]
  - Joint swelling [Unknown]
  - Body temperature increased [Unknown]
